FAERS Safety Report 19768497 (Version 7)
Quarter: 2022Q4

REPORT INFORMATION
  Report Type: Report from Study
  Country: FR (occurrence: FR)
  Receive Date: 20210831
  Receipt Date: 20221202
  Transmission Date: 20230112
  Serious: Yes (Hospitalization, Other)
  Sender: FDA-Public Use
  Company Number: FR-TAKEDA-2021TUS043814

PATIENT
  Sex: Male

DRUGS (68)
  1. TEDUGLUTIDE [Suspect]
     Active Substance: TEDUGLUTIDE
     Indication: Short-bowel syndrome
     Dosage: 2.4 MILLIGRAM, QD
     Route: 042
     Dates: start: 20180817, end: 20190624
  2. TEDUGLUTIDE [Suspect]
     Active Substance: TEDUGLUTIDE
     Indication: Short-bowel syndrome
     Dosage: 2.4 MILLIGRAM, QD
     Route: 042
     Dates: start: 20180817, end: 20190624
  3. TEDUGLUTIDE [Suspect]
     Active Substance: TEDUGLUTIDE
     Indication: Short-bowel syndrome
     Dosage: 2.4 MILLIGRAM, QD
     Route: 042
     Dates: start: 20180817, end: 20190624
  4. TEDUGLUTIDE [Suspect]
     Active Substance: TEDUGLUTIDE
     Indication: Short-bowel syndrome
     Dosage: 2.4 MILLIGRAM, QD
     Route: 042
     Dates: start: 20180817, end: 20190624
  5. VANCOMYCIN [Concomitant]
     Active Substance: VANCOMYCIN
     Indication: Antibiotic therapy
     Dosage: 125 MILLIGRAM, QID
     Route: 042
     Dates: start: 20201228, end: 20201229
  6. VANCOMYCIN [Concomitant]
     Active Substance: VANCOMYCIN
     Dosage: 125 MILLIGRAM, QD
     Route: 042
     Dates: start: 20201228, end: 20210126
  7. INNOHEP [Concomitant]
     Active Substance: TINZAPARIN SODIUM
     Indication: Thrombosis prophylaxis
     Dosage: 0.39 MILLILITER
     Route: 058
     Dates: start: 20180622, end: 20180707
  8. INNOHEP [Concomitant]
     Active Substance: TINZAPARIN SODIUM
     Dosage: 14000 INTERNATIONAL UNIT, QD
     Route: 030
     Dates: start: 20191218, end: 20200705
  9. INNOHEP [Concomitant]
     Active Substance: TINZAPARIN SODIUM
     Dosage: 1600 INTERNATIONAL UNIT, QD
     Route: 030
     Dates: start: 20200706, end: 202007
  10. INNOHEP [Concomitant]
     Active Substance: TINZAPARIN SODIUM
     Dosage: 17000 INTERNATIONAL UNIT, QD
     Route: 058
     Dates: start: 20220302, end: 202203
  11. INNOHEP [Concomitant]
     Active Substance: TINZAPARIN SODIUM
     Dosage: 17000 INTERNATIONAL UNIT, QD
     Route: 058
     Dates: start: 20220411
  12. HUMIRA [Concomitant]
     Active Substance: ADALIMUMAB
     Indication: Arthritis
     Dosage: 40 MILLIGRAM
     Route: 058
     Dates: start: 20180828, end: 20220228
  13. MELATONINE ISOTEC [Concomitant]
     Indication: Sleep disorder
     Dosage: 2 MILLIGRAM, QD
     Route: 048
     Dates: start: 20210126, end: 202106
  14. GLIVEC [Concomitant]
     Active Substance: IMATINIB MESYLATE
     Indication: Ulcer
     Dosage: 400 MILLIGRAM, QD
     Route: 048
     Dates: start: 20210122
  15. GLIVEC [Concomitant]
     Active Substance: IMATINIB MESYLATE
     Dosage: 400 MILLIGRAM, QD
     Route: 048
     Dates: start: 20210119
  16. ACUPAN [Concomitant]
     Active Substance: NEFOPAM HYDROCHLORIDE
     Indication: Abdominal pain
     Dosage: 120 MILLIGRAM, QD
     Route: 042
     Dates: start: 20201231, end: 20210114
  17. ACUPAN [Concomitant]
     Active Substance: NEFOPAM HYDROCHLORIDE
     Indication: Gait disturbance
     Dosage: 20 MILLIGRAM
     Route: 042
     Dates: start: 202002, end: 202003
  18. MORPHINE [Concomitant]
     Active Substance: MORPHINE
     Indication: Abdominal pain
     Dosage: UNK
     Route: 065
     Dates: start: 20201231, end: 20210120
  19. MORPHINE [Concomitant]
     Active Substance: MORPHINE
     Dosage: 30 MILLIGRAM/KILOGRAM
     Route: 042
     Dates: start: 20200222, end: 20200228
  20. URSODIOL [Concomitant]
     Active Substance: URSODIOL
     Indication: Cholelithiasis
     Dosage: 750 MILLIGRAM, QD
     Route: 048
     Dates: start: 20050730
  21. QUESTRAN [Concomitant]
     Active Substance: CHOLESTYRAMINE
     Indication: Ileectomy
     Dosage: 4 GRAM, QD
     Route: 048
     Dates: start: 20050730, end: 20080622
  22. ESOMEPRAZOLE [Concomitant]
     Active Substance: ESOMEPRAZOLE
     Indication: Gastrooesophageal reflux prophylaxis
     Dosage: 40 MILLIGRAM, QD
     Route: 048
     Dates: start: 201609
  23. SMECTA [Concomitant]
     Active Substance: MONTMORILLONITE
     Indication: Diarrhoea
     Dosage: 3 GRAM, TID
     Route: 048
     Dates: start: 20050730, end: 20180621
  24. Calcidose [Concomitant]
     Indication: Calcium deficiency
     Dosage: 500 MILLIGRAM, QD
     Route: 048
     Dates: start: 200901
  25. SERETIDE [Concomitant]
     Active Substance: FLUTICASONE PROPIONATE\SALMETEROL XINAFOATE
     Indication: Asthma prophylaxis
     Dosage: 200 PUFFS, BID
     Route: 055
     Dates: start: 201012
  26. CALCIUM PHOSPHATE, DIBASIC, ANHYDROUS\MAGNESIUM GLYCEROPHOSPHATE\PHOSP [Concomitant]
     Active Substance: CALCIUM PHOSPHATE, DIBASIC, ANHYDROUS\MAGNESIUM GLYCEROPHOSPHATE\PHOSPHORIC ACID\SODIUM PHOSPHATE, D
     Indication: Hypophosphataemia
     Dosage: 35 GTT DROPS, TID
     Route: 048
     Dates: start: 20090430, end: 201805
  27. BACTRIM [Concomitant]
     Active Substance: SULFAMETHOXAZOLE\TRIMETHOPRIM
     Indication: Infection prophylaxis
     Dosage: 400 MILLIGRAM
     Route: 048
     Dates: start: 20170419
  28. CREON [Concomitant]
     Active Substance: PANCRELIPASE AMYLASE\PANCRELIPASE LIPASE\PANCRELIPASE PROTEASE
     Indication: Pancreatic enzyme abnormality
     Dosage: 2500 UNK, BID
     Route: 048
     Dates: start: 20150312
  29. LOPERAMIDE [Concomitant]
     Active Substance: LOPERAMIDE
     Indication: Prophylaxis against diarrhoea
     Dosage: UNK
     Route: 048
     Dates: start: 20180622
  30. ASPIRIN DL-LYSINE [Concomitant]
     Active Substance: ASPIRIN DL-LYSINE
     Indication: Gait disturbance
     Dosage: 100 MILLIGRAM, QD
     Route: 048
     Dates: start: 20180409
  31. POTASSIUM CHLORIDE [Concomitant]
     Active Substance: POTASSIUM CHLORIDE
     Indication: Hypokalaemia
     Dosage: UNK, TID
     Route: 048
     Dates: start: 20180408, end: 20180410
  32. SODIUM BICARBONATE [Concomitant]
     Active Substance: SODIUM BICARBONATE
     Indication: Prophylaxis against diarrhoea
     Dosage: 24 DOSAGE FORM, QD
     Route: 048
     Dates: start: 20180408, end: 20180410
  33. MAGNESIUM [Concomitant]
     Active Substance: MAGNESIUM
     Indication: Magnesium deficiency
     Dosage: UNK, QD
     Route: 048
     Dates: start: 20180408, end: 20180410
  34. ENTOCORT [Concomitant]
     Active Substance: BUDESONIDE
     Indication: Abdominal pain
     Dosage: 9 MILLIGRAM, QD
     Route: 048
     Dates: start: 20180408, end: 20180410
  35. WARFARIN SODIUM [Concomitant]
     Active Substance: WARFARIN SODIUM
     Indication: Thrombosis prophylaxis
     Dosage: 6.5 MILLIGRAM, QD
     Route: 048
     Dates: start: 20190618
  36. PAROEX [Concomitant]
     Active Substance: CHLORHEXIDINE GLUCONATE
     Indication: Oral disorder
     Dosage: 10 MILLILITER, TID
     Route: 048
     Dates: start: 20190618
  37. STELARA [Concomitant]
     Active Substance: USTEKINUMAB
     Indication: Arthritis
     Dosage: 90 MILLIGRAM
     Route: 058
     Dates: start: 20190619
  38. VANCOMYCIN [Concomitant]
     Active Substance: VANCOMYCIN
     Indication: Antibiotic therapy
     Dosage: 20 MILLIGRAM/KILOGRAM
     Route: 042
     Dates: start: 20190616, end: 20190618
  39. VANCOMYCIN [Concomitant]
     Active Substance: VANCOMYCIN
     Dosage: 20 MILLIGRAM/KILOGRAM
     Route: 042
     Dates: start: 20190619, end: 20190628
  40. VANCOMYCIN [Concomitant]
     Active Substance: VANCOMYCIN
     Dosage: 20 MILLIGRAM/KILOGRAM
     Route: 042
     Dates: start: 20200223, end: 20200228
  41. VANCOMYCIN [Concomitant]
     Active Substance: VANCOMYCIN
     Dosage: 125 MILLIGRAM, QID
     Route: 042
     Dates: start: 20201228, end: 20201229
  42. VANCOMYCIN [Concomitant]
     Active Substance: VANCOMYCIN
     Dosage: 15 MILLIGRAM/KILOGRAM, QD
     Route: 042
     Dates: start: 20220302, end: 202203
  43. AMIKACIN SULFATE [Concomitant]
     Active Substance: AMIKACIN SULFATE
     Indication: Infection prophylaxis
     Dosage: 15 MILLIGRAM/KILOGRAM
     Route: 042
     Dates: start: 20190616, end: 20190618
  44. AMIKACIN SULFATE [Concomitant]
     Active Substance: AMIKACIN SULFATE
     Dosage: 15 MILLIGRAM/KILOGRAM
     Route: 042
     Dates: start: 20200223, end: 20200223
  45. AMIKACIN SULFATE [Concomitant]
     Active Substance: AMIKACIN SULFATE
     Dosage: 500 MILLIGRAM
     Route: 042
     Dates: start: 20210103, end: 20210111
  46. AMIKACIN SULFATE [Concomitant]
     Active Substance: AMIKACIN SULFATE
     Dosage: 15 MILLIGRAM/KILOGRAM
     Route: 042
     Dates: start: 20190619, end: 20190628
  47. PIPERACILLIN SODIUM\TAZOBACTAM SODIUM [Concomitant]
     Active Substance: PIPERACILLIN SODIUM\TAZOBACTAM SODIUM
     Indication: Infection prophylaxis
     Dosage: 4 GRAM
     Route: 042
     Dates: start: 20190616, end: 20190618
  48. PIPERACILLIN SODIUM\TAZOBACTAM SODIUM [Concomitant]
     Active Substance: PIPERACILLIN SODIUM\TAZOBACTAM SODIUM
     Dosage: 4 GRAM
     Route: 042
     Dates: start: 20200223, end: 20200228
  49. PIPERACILLIN SODIUM\TAZOBACTAM SODIUM [Concomitant]
     Active Substance: PIPERACILLIN SODIUM\TAZOBACTAM SODIUM
     Dosage: UNK, QD
     Route: 042
     Dates: start: 20201228, end: 20210103
  50. PIPERACILLIN SODIUM [Concomitant]
     Active Substance: PIPERACILLIN SODIUM
     Indication: Infection prophylaxis
     Dosage: 4 GRAM
     Route: 042
     Dates: start: 20190619, end: 20190628
  51. TAZOBACTAM [Concomitant]
     Active Substance: TAZOBACTAM
     Indication: Infection prophylaxis
     Dosage: 0.5 GRAM
     Route: 042
     Dates: start: 20190619, end: 20190628
  52. VALACYCLOVIR HYDROCHLORIDE [Concomitant]
     Active Substance: VALACYCLOVIR HYDROCHLORIDE
     Indication: Leukoplakia oral
     Dosage: 1000 MILLIGRAM, BID
     Route: 048
     Dates: start: 20190627, end: 20190703
  53. CHOLECALCIFEROL [Concomitant]
     Active Substance: CHOLECALCIFEROL
     Indication: Multi-vitamin deficiency
     Dosage: UNK
     Route: 048
     Dates: start: 20210126
  54. FLAGYL [Concomitant]
     Active Substance: METRONIDAZOLE\METRONIDAZOLE HYDROCHLORIDE
     Indication: Antibiotic therapy
     Dosage: 500 MILLIGRAM
     Route: 048
     Dates: start: 20210103, end: 20210111
  55. CLAFORAN [Concomitant]
     Active Substance: CEFOTAXIME SODIUM
     Indication: Antibiotic therapy
     Dosage: UNK UNK, QID
     Route: 042
     Dates: start: 20210103, end: 20210111
  56. PHLOROGLUCINOL [Concomitant]
     Active Substance: PHLOROGLUCINOL
     Indication: Abdominal pain
     Dosage: UNK
     Route: 042
     Dates: start: 20201228, end: 202101
  57. PHLOROGLUCINOL [Concomitant]
     Active Substance: PHLOROGLUCINOL
     Dosage: 160 MILLIGRAM, QD
     Route: 048
     Dates: start: 20220304
  58. NUBAIN [Concomitant]
     Active Substance: NALBUPHINE HYDROCHLORIDE
     Indication: Abdominal pain
     Dosage: 0.2 MILLIGRAM/KILOGRAM
     Route: 042
     Dates: start: 20201228, end: 202101
  59. URSODIOL [Concomitant]
     Active Substance: URSODIOL
     Indication: Secretion discharge
     Dosage: 750 MILLIGRAM, QD
     Route: 048
     Dates: start: 20220302
  60. DESLORATADINE [Concomitant]
     Active Substance: DESLORATADINE
     Indication: Prophylaxis
     Dosage: 5 MILLIGRAM, QD
     Route: 048
     Dates: start: 20161201, end: 201711
  61. FLECTOR [Concomitant]
     Active Substance: DICLOFENAC EPOLAMINE
     Indication: Arthritis reactive
     Dosage: UNK UNK, BID
     Route: 061
     Dates: start: 20190822
  62. ACETAMINOPHEN [Concomitant]
     Active Substance: ACETAMINOPHEN
     Indication: Pain
     Dosage: 500 MILLIGRAM
     Route: 048
     Dates: start: 20211026, end: 20211027
  63. ACETAMINOPHEN [Concomitant]
     Active Substance: ACETAMINOPHEN
     Dosage: 1000 MILLIGRAM, QID
     Route: 048
     Dates: start: 20220302
  64. VITAMIN D [Concomitant]
     Active Substance: VITAMIN D NOS
     Indication: Osteoporosis
     Dosage: UNK UNK, QD
     Route: 048
     Dates: start: 20211122
  65. ASPIRIN [Concomitant]
     Active Substance: ASPIRIN
     Indication: Pyrexia
     Dosage: 100 MILLIGRAM, QD
     Route: 048
     Dates: start: 20220302
  66. DEXTROSE\POTASSIUM CHLORIDE\SODIUM CHLORIDE [Concomitant]
     Active Substance: DEXTROSE\POTASSIUM CHLORIDE\SODIUM CHLORIDE
     Indication: Parenteral nutrition
     Dosage: 120 MILLILITER
     Route: 042
     Dates: start: 20220302
  67. CEFAZOLIN SODIUM [Concomitant]
     Active Substance: CEFAZOLIN SODIUM
     Indication: Infection
     Dosage: 6000 MILLIGRAM, QD
     Route: 042
     Dates: start: 20220309, end: 202203
  68. ADALIMUMAB [Concomitant]
     Active Substance: ADALIMUMAB
     Indication: Arthralgia
     Dosage: 40 MILLIGRAM
     Route: 058
     Dates: start: 20220415

REACTIONS (2)
  - Intestinal haematoma [Recovered/Resolved]
  - Abdominal pain [Recovered/Resolved]

NARRATIVE: CASE EVENT DATE: 20201228
